FAERS Safety Report 5914784-4 (Version None)
Quarter: 2008Q4

REPORT INFORMATION
  Report Type: 
  Country: None (occurrence: None)
  Receive Date: 20081010
  Receipt Date: 20081001
  Transmission Date: 20090506
  Serious: Yes (Hospitalization)
  Sender: FDA-Public Use
  Company Number: US-ROCHE-541768

PATIENT
  Age: 54 Year
  Sex: Male

DRUGS (9)
  1. KLONOPIN [Suspect]
     Indication: ANXIETY
     Route: 065
  2. KLONOPIN [Suspect]
     Route: 065
     Dates: start: 20000101
  3. CLONAZEPAM [Suspect]
     Indication: ANXIETY
     Route: 065
  4. NARDIL [Suspect]
     Indication: DRUG USE FOR UNKNOWN INDICATION
     Dosage: COMING OFF
     Route: 065
  5. SEROQUEL [Concomitant]
  6. TRICOR [Concomitant]
     Dosage: REPORTED AS TRICOR 145
  7. ATENOLOL [Concomitant]
  8. ASPIRIN [Concomitant]
  9. MULTIVITAMIN NOS [Concomitant]

REACTIONS (7)
  - DIZZINESS [None]
  - ERECTILE DYSFUNCTION [None]
  - GASTROINTESTINAL INFECTION [None]
  - LIBIDO DECREASED [None]
  - OBSESSIVE-COMPULSIVE DISORDER [None]
  - PNEUMONIA [None]
  - PSYCHOTIC DISORDER [None]
